FAERS Safety Report 5195991-8 (Version None)
Quarter: 2006Q4

REPORT INFORMATION
  Report Type: 
  Country: None (occurrence: None)
  Receive Date: 20061227
  Receipt Date: 20061213
  Transmission Date: 20070319
  Serious: Yes (Other)
  Sender: FDA-Public Use
  Company Number: 220012L06JPN

PATIENT
  Age: 29 Year
  Sex: Male

DRUGS (5)
  1. SOMATROPIN (SOMATROPIN) [Suspect]
     Indication: HYPOPITUITARISM
  2. CHORIONIC GONADOTROPIN (CHORIONIC GONADOTROPHIN) [Suspect]
     Indication: HYPOPITUITARISM
  3. MENOTROPHIN (MENOTROPHIN) [Suspect]
     Indication: HYPOPITUITARISM
  4. DDAVP [Concomitant]
  5. THYROID HORMONES [Concomitant]

REACTIONS (1)
  - GLOMERULONEPHRITIS PROLIFERATIVE [None]
